FAERS Safety Report 4550974-3 (Version None)
Quarter: 2004Q4

REPORT INFORMATION
  Report Type: 
  Country: None (occurrence: None)
  Receive Date: 20041217
  Receipt Date: 20040820
  Transmission Date: 20050328
  Serious: No
  Sender: FDA-Public Use
  Company Number: 2004-BP-070787BP(0)

PATIENT
  Sex: Female

DRUGS (8)
  1. SPIRIVA [Suspect]
     Indication: CHRONIC OBSTRUCTIVE AIRWAYS DISEASE
     Dosage: 18 MCG (18 MCG) IH
     Route: 055
     Dates: start: 20040817, end: 20040819
  2. MAXAIR [Concomitant]
  3. PULMICORT [Concomitant]
  4. PROTONIX [Concomitant]
  5. CARDIZEM [Concomitant]
  6. MIRALAX [Concomitant]
  7. ZYRETC (CETIRIZINE HYDROCHLORIDE) [Concomitant]
  8. NASAREL (FLUNISOLIDE) [Concomitant]

REACTIONS (5)
  - ABDOMINAL PAIN [None]
  - DIARRHOEA [None]
  - NAUSEA [None]
  - POLLAKIURIA [None]
  - URINARY RETENTION [None]
